FAERS Safety Report 6305889-7 (Version None)
Quarter: 2009Q3

REPORT INFORMATION
  Report Type: 
  Country: None (occurrence: None)
  Receive Date: 20090812
  Receipt Date: 20090806
  Transmission Date: 20100115
  Serious: Yes (Life-Threatening, Hospitalization)
  Sender: FDA-Public Use
  Company Number: US-KINGPHARMUSA00001-K200900934

PATIENT
  Age: 73 Year
  Sex: Female

DRUGS (10)
  1. ALTACE [Suspect]
     Dosage: 10 MG, UNK
     Route: 048
  2. METFORMIN HCL [Suspect]
     Dosage: 1000 MG, UNK
     Route: 048
  3. OPTIJECT [Suspect]
     Dosage: UNK
     Route: 042
     Dates: start: 20090506
  4. COUMADIN [Concomitant]
     Dosage: 2 MG, UNK
     Route: 048
  5. NOVONORM [Concomitant]
     Dosage: 2 MG, UNK
     Route: 048
  6. DIAMICRON [Concomitant]
     Dosage: 30 MG, UNK
     Route: 048
  7. ELISOR [Concomitant]
     Dosage: 40 G, UNK
     Route: 048
  8. CARDENSIEL [Concomitant]
     Dosage: 2.5 MG, UNK
     Route: 048
  9. MOPRAL [Concomitant]
     Dosage: 20 MG, UNK
     Route: 048
  10. HEMIGOXINE [Concomitant]
     Route: 048

REACTIONS (8)
  - ABDOMINAL PAIN [None]
  - COMA [None]
  - DIALYSIS [None]
  - HYPOTENSION [None]
  - LACTIC ACIDOSIS [None]
  - NAUSEA [None]
  - RENAL FAILURE ACUTE [None]
  - VOMITING [None]
